FAERS Safety Report 11852115 (Version 1)
Quarter: 2015Q4

REPORT INFORMATION
  Report Type: Spontaneous
  Country: PT (occurrence: PT)
  Receive Date: 20151218
  Receipt Date: 20151218
  Transmission Date: 20160305
  Serious: Yes (Other)
  Sender: FDA-Public Use
  Company Number: PT-BAYER-2015-492167

PATIENT
  Sex: Male

DRUGS (1)
  1. ULTRAVIST [Suspect]
     Active Substance: IOPROMIDE
     Indication: SCAN WITH CONTRAST
     Dosage: 1 DF, ONCE
     Route: 042
     Dates: start: 20151124

REACTIONS (8)
  - Oedema [Recovered/Resolved]
  - Oropharyngeal discomfort [Recovered/Resolved]
  - Face oedema [Recovered/Resolved]
  - Lip oedema [Recovered/Resolved]
  - Erythema [Recovered/Resolved]
  - Periorbital oedema [Recovered/Resolved]
  - General physical condition abnormal [Recovered/Resolved]
  - Sneezing [Recovered/Resolved]

NARRATIVE: CASE EVENT DATE: 20151124
